FAERS Safety Report 7492674-6 (Version None)
Quarter: 2011Q2

REPORT INFORMATION
  Report Type: 
  Country: None (occurrence: None)
  Receive Date: 20110519
  Receipt Date: 20110512
  Transmission Date: 20111010
  Serious: Yes (Life-Threatening, Hospitalization)
  Sender: FDA-Public Use
  Company Number: JP-B.I. PHARMACEUTICALS,INC./RIDGEFIELD-2011-BP-12605NB

PATIENT
  Age: 77 Year
  Sex: Male

DRUGS (2)
  1. PRAZAXA [Suspect]
     Indication: ATRIAL FIBRILLATION
     Dates: start: 20110322
  2. MENEST [Concomitant]
     Indication: PARKINSON'S DISEASE
     Route: 065
     Dates: start: 20110425

REACTIONS (5)
  - RENAL FAILURE ACUTE [None]
  - RENAL TUBULAR ACIDOSIS [None]
  - RENAL ARTERY OCCLUSION [None]
  - HAEMORRHAGE [None]
  - BLOOD CREATINE PHOSPHOKINASE INCREASED [None]
